FAERS Safety Report 24398648 (Version 1)
Quarter: 2024Q4

REPORT INFORMATION
  Report Type: Spontaneous
  Country: JP (occurrence: JP)
  Receive Date: 20241004
  Receipt Date: 20241004
  Transmission Date: 20250114
  Serious: Yes (Other)
  Sender: AMGEN
  Company Number: JP-ONO-2024JP019906

PATIENT
  Age: 8 Decade
  Sex: Male

DRUGS (1)
  1. KYPROLIS [Suspect]
     Active Substance: CARFILZOMIB
     Indication: Plasma cell myeloma
     Dosage: UNK, QW
     Route: 041

REACTIONS (3)
  - Femur fracture [Unknown]
  - Arrhythmia [Unknown]
  - Fall [Unknown]
